FAERS Safety Report 18917842 (Version 3)
Quarter: 2025Q2

REPORT INFORMATION
  Report Type: Spontaneous
  Country: RO (occurrence: RO)
  Receive Date: 20210220
  Receipt Date: 20250626
  Transmission Date: 20250717
  Serious: Yes (Other)
  Sender: AUROBINDO
  Company Number: RO-GLAXOSMITHKLINE-RO2021EME018062

PATIENT
  Age: 34 Year
  Sex: Female

DRUGS (8)
  1. ACYCLOVIR [Suspect]
     Active Substance: ACYCLOVIR
     Indication: Rash vesicular
     Dosage: 800 MILLIGRAM, ONCE A DAY
     Route: 065
  2. ACYCLOVIR [Suspect]
     Active Substance: ACYCLOVIR
     Indication: Antiviral prophylaxis
  3. ACYCLOVIR [Suspect]
     Active Substance: ACYCLOVIR
     Indication: Herpes zoster
     Route: 061
  4. ACYCLOVIR [Suspect]
     Active Substance: ACYCLOVIR
     Indication: Antiviral prophylaxis
  5. ALLOPURINOL [Concomitant]
     Active Substance: ALLOPURINOL
     Indication: Haemostasis
     Route: 065
  6. IDARUBICIN [Concomitant]
     Active Substance: IDARUBICIN
     Indication: Acute promyelocytic leukaemia
     Dosage: 12 MILLIGRAM/SQ. METER, ONCE A DAY (ON DAYS 2, 4, 6, 8, TOGETHER WITH SUPPORTIVE TREATMENT)
     Route: 065
  7. POSACONAZOLE [Concomitant]
     Active Substance: POSACONAZOLE
     Indication: Antifungal prophylaxis
     Route: 065
  8. TRETINOIN [Concomitant]
     Active Substance: TRETINOIN
     Indication: Acute promyelocytic leukaemia
     Dosage: 45 MILLIGRAM/SQ. METER, ONCE A DAY
     Route: 065

REACTIONS (7)
  - Necrosis [Recovered/Resolved]
  - Condition aggravated [Recovered/Resolved]
  - Spontaneous haemorrhage [Recovered/Resolved]
  - Rash vesicular [Unknown]
  - Pyrexia [Recovered/Resolved]
  - Congenital aplasia [Recovered/Resolved]
  - Drug ineffective [Recovered/Resolved]
